FAERS Safety Report 16058825 (Version 2)
Quarter: 2019Q1

REPORT INFORMATION
  Report Type: Spontaneous
  Country: US (occurrence: US)
  Receive Date: 20190311
  Receipt Date: 20190313
  Transmission Date: 20190418
  Serious: Yes (Other)
  Sender: FDA-Public Use
  Company Number: US-REGENERON PHARMACEUTICALS, INC.-2019-21347

PATIENT

DRUGS (2)
  1. EYLEA [Suspect]
     Active Substance: AFLIBERCEPT
     Indication: NEOVASCULAR AGE-RELATED MACULAR DEGENERATION
     Dosage: UNK, OD
  2. EYLEA [Suspect]
     Active Substance: AFLIBERCEPT
     Dosage: UNK, LAST DOSE PRIOR EVENTS, OD
     Dates: start: 20190219, end: 20190219

REACTIONS (2)
  - Endophthalmitis [Unknown]
  - Retinal detachment [Unknown]
